FAERS Safety Report 8306100-8 (Version None)
Quarter: 2012Q2

REPORT INFORMATION
  Report Type: 
  Country: None (occurrence: None)
  Receive Date: 20120423
  Receipt Date: 20120417
  Transmission Date: 20120825
  Serious: Yes (Other)
  Sender: FDA-Public Use
  Company Number: US-PFIZER INC-2012056236

PATIENT
  Sex: Male

DRUGS (4)
  1. ZYBAN [Interacting]
     Dosage: UNK
  2. CHANTIX [Interacting]
     Dosage: UNK
  3. CHANTIX [Suspect]
     Dosage: UNK
  4. WELLBUTRIN [Interacting]
     Dosage: UNK

REACTIONS (6)
  - BLOOD PRESSURE ABNORMAL [None]
  - ARTHROPATHY [None]
  - MUSCULOSKELETAL DISCOMFORT [None]
  - LIMB DISCOMFORT [None]
  - DRUG INTERACTION [None]
  - NICOTINE DEPENDENCE [None]
